FAERS Safety Report 12610447 (Version 2)
Quarter: 2016Q3

REPORT INFORMATION
  Report Type: Spontaneous
  Country: US (occurrence: US)
  Receive Date: 20160801
  Receipt Date: 20160819
  Transmission Date: 20161109
  Serious: No
  Sender: FDA-Public Use
  Company Number: US-ELI_LILLY_AND_COMPANY-US201607006427

PATIENT
  Age: 67 Year
  Sex: Female

DRUGS (2)
  1. FORTEO [Suspect]
     Active Substance: TERIPARATIDE
     Dosage: 20 UG, QD
     Route: 065
  2. FORTEO [Suspect]
     Active Substance: TERIPARATIDE
     Indication: OSTEOPOROSIS
     Dosage: UNK UNK, UNKNOWN
     Route: 065
     Dates: start: 20160310

REACTIONS (6)
  - Pelvic pain [Recovering/Resolving]
  - Pain [Recovering/Resolving]
  - Sciatica [Recovering/Resolving]
  - Injection site pain [Recovering/Resolving]
  - Neuropathy peripheral [Not Recovered/Not Resolved]
  - Pelvic discomfort [Recovering/Resolving]

NARRATIVE: CASE EVENT DATE: 201603
